FAERS Safety Report 16819307 (Version 1)
Quarter: 2019Q3

REPORT INFORMATION
  Report Type: Spontaneous
  Country: US (occurrence: US)
  Receive Date: 20190917
  Receipt Date: 20190917
  Transmission Date: 20191005
  Serious: No
  Sender: FDA-Public Use
  Company Number: US-TEVA-2019-US-1107398

PATIENT
  Sex: Male

DRUGS (2)
  1. PROPRANOLOL HYDROCHLORIDE ACTA [Suspect]
     Active Substance: PROPRANOLOL HYDROCHLORIDE
     Indication: ANXIETY
     Dosage: DOSE: 10 MILLIGRAM; IMPRINT PLIVA 468
     Route: 065
  2. PROPRANOLOL HYDROCHLORIDE ACTA [Suspect]
     Active Substance: PROPRANOLOL HYDROCHLORIDE
     Indication: HEART RATE INCREASED

REACTIONS (2)
  - Drug ineffective [Unknown]
  - Product dispensing error [Unknown]
